FAERS Safety Report 18642367 (Version 1)
Quarter: 2020Q4

REPORT INFORMATION
  Report Type: Spontaneous
  Country: US (occurrence: US)
  Receive Date: 20201221
  Receipt Date: 20201221
  Transmission Date: 20210114
  Serious: Yes (Other)
  Sender: FDA-Public Use
  Company Number: US-009507513-2012USA006989

PATIENT
  Sex: Female

DRUGS (2)
  1. FOSAMAX [Suspect]
     Active Substance: ALENDRONATE SODIUM
     Dosage: DOSE STRENGTH: 70
     Route: 065
     Dates: start: 20180305
  2. FOSAMAX [Suspect]
     Active Substance: ALENDRONATE SODIUM
     Dosage: DOSE STRENGTH: 70
     Route: 065
     Dates: start: 20180307

REACTIONS (4)
  - Fall [Unknown]
  - Spinal fracture [Unknown]
  - Inappropriate schedule of product administration [Unknown]
  - Nausea [Unknown]

NARRATIVE: CASE EVENT DATE: 20180307
